FAERS Safety Report 24050382 (Version 1)
Quarter: 2024Q3

REPORT INFORMATION
  Report Type: Spontaneous
  Country: PL (occurrence: PL)
  Receive Date: 20240704
  Receipt Date: 20240704
  Transmission Date: 20241017
  Serious: Yes (Other)
  Sender: DR REDDYS
  Company Number: PL-GERMAN-LIT/POL/24/0009383

PATIENT
  Age: 48 Year
  Sex: Male

DRUGS (4)
  1. PREGABALIN [Suspect]
     Active Substance: PREGABALIN
     Indication: Cytotoxic lesions of corpus callosum
  2. FOLIC ACID [Concomitant]
     Active Substance: FOLIC ACID
     Indication: Cytotoxic lesions of corpus callosum
  3. THIAMINE [Concomitant]
     Active Substance: THIAMINE
     Indication: Cytotoxic lesions of corpus callosum
  4. VITAMIN B12 [Concomitant]
     Active Substance: CYANOCOBALAMIN
     Indication: Cytotoxic lesions of corpus callosum

REACTIONS (1)
  - Drug ineffective for unapproved indication [Unknown]
